FAERS Safety Report 9133346 (Version 2)
Quarter: 2013Q1

REPORT INFORMATION
  Report Type: Spontaneous
  Country: US (occurrence: US)
  Receive Date: 20130301
  Receipt Date: 20130318
  Transmission Date: 20140127
  Serious: No
  Sender: FDA-Public Use
  Company Number: US-PFIZER INC-2013074091

PATIENT
  Sex: Male

DRUGS (3)
  1. LYRICA [Suspect]
     Dosage: 75 MG, 3X/DAY
  2. PERCOCET [Concomitant]
     Indication: MYALGIA
     Dosage: UNK
  3. VICODIN [Concomitant]
     Indication: MYALGIA
     Dosage: UNK

REACTIONS (1)
  - Drug effect incomplete [Unknown]
